FAERS Safety Report 9015627 (Version 1)
Quarter: 2013Q1

REPORT INFORMATION
  Report Type: Spontaneous
  Country: US (occurrence: US)
  Receive Date: 20130116
  Receipt Date: 20130116
  Transmission Date: 20140127
  Serious: Yes (Other)
  Sender: FDA-Public Use
  Company Number: US-009507513-1301XAA004139

PATIENT
  Sex: Male

DRUGS (6)
  1. SINGULAIR [Suspect]
     Indication: ASTHMA
     Dosage: UNK
  2. [COMPOSITION UNSPECIFIED] [Suspect]
     Dosage: UNK
  3. ALLOPURINOL [Suspect]
     Indication: GOUT
     Dosage: UNK
  4. METFORMIN HYDROCHLORIDE [Suspect]
     Dosage: UNK
  5. SALAMOL [Suspect]
     Indication: ASTHMA
     Dosage: UNK
     Route: 055
  6. VENTOLIN (ALBUTEROL) [Suspect]
     Indication: ASTHMA
     Dosage: UNK

REACTIONS (6)
  - Wheezing [Unknown]
  - Sleep apnoea syndrome [Unknown]
  - Nasopharyngitis [Unknown]
  - Ill-defined disorder [Unknown]
  - Dyspnoea [Unknown]
  - Cough [Unknown]
